FAERS Safety Report 6551694-6 (Version None)
Quarter: 2010Q1

REPORT INFORMATION
  Report Type: 
  Country: None (occurrence: None)
  Receive Date: 20100126
  Receipt Date: 20100113
  Transmission Date: 20100710
  Serious: Yes (Other)
  Sender: FDA-Public Use
  Company Number: PHHY2009JP29336

PATIENT
  Age: 70 Year

DRUGS (2)
  1. DIOVAN HCT [Suspect]
     Indication: HYPERTENSION
     Dosage: 1DF, DAILY
     Route: 048
     Dates: end: 20090716
  2. DIOVAN [Suspect]
     Indication: HYPERTENSION
     Route: 048

REACTIONS (2)
  - CEREBRAL INFARCTION [None]
  - OEDEMA [None]
